FAERS Safety Report 6921705-4 (Version None)
Quarter: 2010Q3

REPORT INFORMATION
  Report Type: 
  Country: None (occurrence: None)
  Receive Date: 20100812
  Receipt Date: 20100803
  Transmission Date: 20110219
  Serious: Yes (Hospitalization)
  Sender: FDA-Public Use
  Company Number: US-MYLANLABS-2010S1014132

PATIENT
  Age: 11 Month
  Sex: Female

DRUGS (1)
  1. FENTANYL CITRATE [Suspect]
     Dosage: 50 UG/HR
     Route: 048
     Dates: start: 20100509, end: 20100509

REACTIONS (2)
  - ACCIDENTAL EXPOSURE [None]
  - CARDIO-RESPIRATORY ARREST [None]
